FAERS Safety Report 22270849 (Version 2)
Quarter: 2023Q2

REPORT INFORMATION
  Report Type: Spontaneous
  Country: US (occurrence: None)
  Receive Date: 20230501
  Receipt Date: 20230504
  Transmission Date: 20230721
  Serious: Yes (Other)
  Sender: FDA-Public Use
  Company Number: 2023A101092

PATIENT

DRUGS (4)
  1. SELUMETINIB [Suspect]
     Active Substance: SELUMETINIB
  2. VINBLASTINE [Concomitant]
     Active Substance: VINBLASTINE
  3. CARBOPLATIN [Concomitant]
     Active Substance: CARBOPLATIN
  4. TRIMETINIB [Concomitant]

REACTIONS (2)
  - Intracranial pressure increased [Unknown]
  - Central nervous system lesion [Unknown]
